FAERS Safety Report 15616006 (Version 1)
Quarter: 2018Q4

REPORT INFORMATION
  Report Type: Spontaneous
  Country: US (occurrence: US)
  Receive Date: 20181108
  Receipt Date: 20181108
  Transmission Date: 20190205
  Serious: No
  Sender: FDA-Public Use
  Company Number: None

PATIENT
  Age: 55 Year
  Sex: Male

DRUGS (1)
  1. COPAXONE [Suspect]
     Active Substance: GLATIRAMER ACETATE
     Indication: MULTIPLE SCLEROSIS
     Dates: start: 2016

REACTIONS (4)
  - Injection site erythema [None]
  - Wrong technique in device usage process [None]
  - Vascular injury [None]
  - Injection site pain [None]

NARRATIVE: CASE EVENT DATE: 20181031
